FAERS Safety Report 17293777 (Version 2)
Quarter: 2020Q1

REPORT INFORMATION
  Report Type: Spontaneous
  Country: US (occurrence: US)
  Receive Date: 20200121
  Receipt Date: 20200207
  Transmission Date: 20200409
  Serious: No
  Sender: FDA-Public Use
  Company Number: US-SA-2020SA012065

PATIENT
  Sex: Female

DRUGS (1)
  1. NASACORT AQ [Suspect]
     Active Substance: TRIAMCINOLONE ACETONIDE
     Indication: SINUS DISORDER
     Dosage: UNK UNK, UNK
     Route: 065

REACTIONS (4)
  - Device difficult to use [Unknown]
  - Packaging design issue [Unknown]
  - Epistaxis [Unknown]
  - Rhinalgia [Unknown]
